FAERS Safety Report 4898721-X (Version None)
Quarter: 2006Q1

REPORT INFORMATION
  Report Type: 
  Country: None (occurrence: None)
  Receive Date: 20060127
  Receipt Date: 20060117
  Transmission Date: 20060701
  Serious: Yes (Death)
  Sender: FDA-Public Use
  Company Number: 2006009305

PATIENT
  Age: 20 Year
  Sex: Male

DRUGS (1)
  1. GEODON [Suspect]
     Indication: SCHIZOPHRENIA, PARANOID TYPE
     Dosage: 80 MG (40 MG, 2 IN 1 D), ORAL
     Route: 048

REACTIONS (6)
  - COMPLETED SUICIDE [None]
  - CONDITION AGGRAVATED [None]
  - GASTROINTESTINAL INJURY [None]
  - HALLUCINATION, AUDITORY [None]
  - PARANOIA [None]
  - SKIN LACERATION [None]
